FAERS Safety Report 18376474 (Version 1)
Quarter: 2020Q4

REPORT INFORMATION
  Report Type: Spontaneous
  Country: US (occurrence: US)
  Receive Date: 20201009
  Receipt Date: 20201009
  Transmission Date: 20210114
  Serious: Yes (Death)
  Sender: FDA-Public Use
  Company Number: None

PATIENT
  Age: 69 Year
  Sex: Female

DRUGS (2)
  1. FULVESTRANT PFS 250/5ML [Suspect]
     Active Substance: FULVESTRANT
     Indication: NEOPLASM MALIGNANT
     Route: 030
     Dates: start: 202009, end: 20201005
  2. TALZENNA [Concomitant]
     Active Substance: TALAZOPARIB TOSYLATE

REACTIONS (1)
  - Death [None]

NARRATIVE: CASE EVENT DATE: 20201005
